FAERS Safety Report 5337636-X (Version None)
Quarter: 2007Q2

REPORT INFORMATION
  Report Type: 
  Country: None (occurrence: None)
  Receive Date: 20070524
  Receipt Date: 20070510
  Transmission Date: 20071010
  Serious: Yes (Other)
  Sender: FDA-Public Use
  Company Number: 013403

PATIENT
  Age: 54 Year
  Sex: Female

DRUGS (6)
  1. CENESTIN [Suspect]
     Dosage: 1 TABLET, QD, ORAL
     Route: 048
  2. INDAPAMIDE [Concomitant]
  3. TERAZOSIN HCL [Concomitant]
  4. CAPTOPRIL [Concomitant]
  5. ATORVASTATIN CALCIUM [Concomitant]
  6. NIACIN [Concomitant]

REACTIONS (2)
  - FEELING COLD [None]
  - LUPUS-LIKE SYNDROME [None]
